FAERS Safety Report 25749931 (Version 1)
Quarter: 2025Q3

REPORT INFORMATION
  Report Type: Spontaneous
  Country: CA (occurrence: CA)
  Receive Date: 20250902
  Receipt Date: 20250902
  Transmission Date: 20251020
  Serious: Yes (Hospitalization)
  Sender: BAYER HEALTHCARE LLC
  Company Number: CA-BAYER-2025A017704

PATIENT
  Age: 11 Year
  Sex: Female

DRUGS (12)
  1. POLYETHYLENE GLYCOL 3350 [Suspect]
     Active Substance: POLYETHYLENE GLYCOL 3350
     Indication: Neurogenic bowel
     Route: 065
  2. POLYETHYLENE GLYCOL 3350 [Suspect]
     Active Substance: POLYETHYLENE GLYCOL 3350
     Indication: Constipation
  3. POLYETHYLENE GLYCOL 3350 [Suspect]
     Active Substance: POLYETHYLENE GLYCOL 3350
     Indication: Anal incontinence
  4. SODIUM CHLORIDE [Suspect]
     Active Substance: SODIUM CHLORIDE
     Indication: Neurogenic bowel
     Route: 065
  5. SODIUM CHLORIDE [Suspect]
     Active Substance: SODIUM CHLORIDE
     Indication: Constipation
  6. SODIUM CHLORIDE [Suspect]
     Active Substance: SODIUM CHLORIDE
     Indication: Anal incontinence
  7. GLYCERIN [Concomitant]
     Active Substance: GLYCERIN
     Indication: Neurogenic bowel
     Route: 065
  8. GLYCERIN [Concomitant]
     Active Substance: GLYCERIN
     Indication: Constipation
  9. GLYCERIN [Concomitant]
     Active Substance: GLYCERIN
     Indication: Anal incontinence
  10. BISACODYL [Concomitant]
     Active Substance: BISACODYL
     Indication: Neurogenic bowel
     Route: 065
  11. BISACODYL [Concomitant]
     Active Substance: BISACODYL
     Indication: Constipation
  12. BISACODYL [Concomitant]
     Active Substance: BISACODYL
     Indication: Anal incontinence

REACTIONS (3)
  - Abdominal distension [Recovered/Resolved]
  - Abdominal pain [Recovered/Resolved]
  - Vomiting [Recovered/Resolved]
